FAERS Safety Report 18241725 (Version 1)
Quarter: 2020Q3

REPORT INFORMATION
  Report Type: Spontaneous
  Country: US (occurrence: US)
  Receive Date: 20200907
  Receipt Date: 20200907
  Transmission Date: 20201103
  Serious: Yes (Other)
  Sender: FDA-Public Use
  Company Number: None

PATIENT
  Age: 43 Year
  Sex: Female
  Weight: 90 kg

DRUGS (3)
  1. COSENTYX [Suspect]
     Active Substance: SECUKINUMAB
     Indication: PSORIASIS
     Dosage: ?          QUANTITY:2 INJECTION(S);OTHER FREQUENCY:2X FOR 5 WEEKS LOA;?
     Route: 058
     Dates: start: 20200805, end: 20200814
  2. FLONASE [Concomitant]
     Active Substance: FLUTICASONE PROPIONATE
  3. IBUPROFEN. [Concomitant]
     Active Substance: IBUPROFEN

REACTIONS (5)
  - Peripheral swelling [None]
  - Injection site pruritus [None]
  - Rash [None]
  - Pruritus [None]
  - Blister [None]

NARRATIVE: CASE EVENT DATE: 20200806
